FAERS Safety Report 9730338 (Version 2)
Quarter: 2014Q1

REPORT INFORMATION
  Report Type: Spontaneous
  Country: GB (occurrence: GB)
  Receive Date: 20131204
  Receipt Date: 20140225
  Transmission Date: 20141002
  Serious: Yes (Hospitalization, Other)
  Sender: FDA-Public Use
  Company Number: GB-ROCHE-1309312

PATIENT
  Age: 61 Year
  Sex: Male
  Weight: 73 kg

DRUGS (19)
  1. RIBAVIRIN [Suspect]
     Indication: CHRONIC HEPATITIS C
     Route: 048
     Dates: start: 20120919, end: 20120926
  2. TELAPREVIR [Suspect]
     Indication: CHRONIC HEPATITIS C
     Route: 048
     Dates: start: 20120919, end: 20120926
  3. PEGINTERFERON ALFA-2B [Suspect]
     Indication: CHRONIC HEPATITIS C
     Route: 058
     Dates: start: 20120919, end: 20120926
  4. TIOTROPIUM [Concomitant]
     Dosage: INHALATION USE
     Route: 065
  5. PREDNISOLONE [Concomitant]
     Route: 065
  6. ADCAL (CALCIUM CARBONATE) [Concomitant]
     Route: 048
  7. AMITRIPTYLINE [Concomitant]
     Route: 065
  8. ASPIRIN [Concomitant]
     Route: 065
  9. BISOPROLOL [Concomitant]
     Route: 065
  10. BUPRENORPHINE [Concomitant]
     Route: 065
  11. BUPRENORPHINE [Concomitant]
     Route: 065
  12. FLUCLOXACILLIN [Concomitant]
     Route: 065
  13. FOLIC ACID [Concomitant]
     Route: 065
  14. GABAPENTIN [Concomitant]
     Route: 065
  15. GABAPENTIN [Concomitant]
     Route: 065
  16. OMEPRAZOLE [Concomitant]
     Route: 065
  17. QUININE SULFATE [Concomitant]
     Route: 065
  18. RAMIPRIL [Concomitant]
     Route: 065
  19. SALBUTAMOL [Concomitant]
     Dosage: INHALATION USE
     Route: 065

REACTIONS (2)
  - Cellulitis [Recovered/Resolved]
  - Bursitis [Unknown]
